FAERS Safety Report 18122081 (Version 2)
Quarter: 2020Q3

REPORT INFORMATION
  Report Type: Spontaneous
  Country: US (occurrence: US)
  Receive Date: 20200807
  Receipt Date: 20200909
  Transmission Date: 20201103
  Serious: No
  Sender: FDA-Public Use
  Company Number: US-SA-2020SA204434

PATIENT

DRUGS (11)
  1. EPICERAM [Concomitant]
     Active Substance: DEVICE
     Dosage: UNK
  2. MONTELUKAST [Concomitant]
     Active Substance: MONTELUKAST SODIUM
  3. VITAMIN D3 [Concomitant]
     Active Substance: CHOLECALCIFEROL
  4. HYDROXYCHLOROQUINE [Concomitant]
     Active Substance: HYDROXYCHLOROQUINE
  5. LANSOPRAZOLE. [Concomitant]
     Active Substance: LANSOPRAZOLE
  6. ZYRTEC [Concomitant]
     Active Substance: CETIRIZINE HYDROCHLORIDE
  7. LOSARTAN. [Concomitant]
     Active Substance: LOSARTAN
  8. AMOXICILLIN. [Concomitant]
     Active Substance: AMOXICILLIN
     Indication: GINGIVAL SWELLING
     Dosage: UNK
     Dates: start: 2020
  9. BALSALAZIDE DISODIUM. [Concomitant]
     Active Substance: BALSALAZIDE DISODIUM
  10. PILOCARPINE. [Concomitant]
     Active Substance: PILOCARPINE
  11. DUPIXENT [Suspect]
     Active Substance: DUPILUMAB
     Indication: DERMATITIS ATOPIC
     Dosage: 300MG/2ML, QOW
     Route: 058
     Dates: start: 20200729

REACTIONS (6)
  - Gingival swelling [Unknown]
  - Injection site reaction [Recovering/Resolving]
  - Injection site bruising [Recovering/Resolving]
  - Injection site rash [Recovering/Resolving]
  - Endodontic procedure [Unknown]
  - Injection site erythema [Recovering/Resolving]

NARRATIVE: CASE EVENT DATE: 2020
